FAERS Safety Report 8619127-3 (Version None)
Quarter: 2012Q3

REPORT INFORMATION
  Report Type: 
  Country: None (occurrence: None)
  Receive Date: 20120824
  Receipt Date: 20120823
  Transmission Date: 20120928
  Serious: Yes (Death, Other)
  Sender: FDA-Public Use
  Company Number: PHHY2012JP069559

PATIENT
  Age: 60 Year
  Sex: Male

DRUGS (1)
  1. NEORAL [Suspect]
     Indication: APLASIA PURE RED CELL
     Dosage: 100 MG, UNK
     Route: 048
     Dates: start: 20120707

REACTIONS (2)
  - CEREBROVASCULAR DISORDER [None]
  - ORAL ADMINISTRATION COMPLICATION [None]
